FAERS Safety Report 23321411 (Version 1)
Quarter: 2023Q4

REPORT INFORMATION
  Report Type: Spontaneous
  Country: US (occurrence: None)
  Receive Date: 20231220
  Receipt Date: 20231220
  Transmission Date: 20240110
  Serious: Yes (Life-Threatening, Hospitalization, Disabling, Other)
  Sender: FDA-Public Use
  Company Number: None

PATIENT
  Age: 36 Year
  Sex: Female
  Weight: 49.5 kg

DRUGS (15)
  1. LEVOFLOXACIN [Suspect]
     Active Substance: LEVOFLOXACIN
     Indication: Urinary tract infection
     Dates: end: 20231214
  2. LEVOFLOXACIN [Suspect]
     Active Substance: LEVOFLOXACIN
     Indication: Cystitis
  3. DOXYCYCLINE [Suspect]
     Active Substance: DOXYCYCLINE
  4. AMOXICILLIN [Suspect]
     Active Substance: AMOXICILLIN
  5. MACROBID [Suspect]
     Active Substance: NITROFURANTOIN\NITROFURANTOIN MONOHYDRATE
  6. NITROFURANTOIN [Suspect]
     Active Substance: NITROFURANTOIN
  7. METRONIDAZOLE [Suspect]
     Active Substance: METRONIDAZOLE
  8. CIPROFLOXACIN [Suspect]
     Active Substance: CIPROFLOXACIN
  9. PHENAZOPYRIDINE [Suspect]
     Active Substance: PHENAZOPYRIDINE
  10. BICILLIN [Suspect]
     Active Substance: PENICILLIN G BENZATHINE
  11. OMEPRAZOLE [Suspect]
     Active Substance: OMEPRAZOLE
  12. SIMETHICONE (DIMETHICONE) [Suspect]
     Active Substance: DIMETHICONE
  13. FLUOXETINE [Suspect]
     Active Substance: FLUOXETINE HYDROCHLORIDE
  14. CEPHALEXIN [Suspect]
     Active Substance: CEPHALEXIN
  15. VITAMIN D2 [Suspect]
     Active Substance: ERGOCALCIFEROL

REACTIONS (7)
  - Cystitis [None]
  - Hepatic pain [None]
  - Renal pain [None]
  - Gastrointestinal pain [None]
  - Quality of life decreased [None]
  - Pain in extremity [None]
  - Blood urine present [None]

NARRATIVE: CASE EVENT DATE: 20230101
